FAERS Safety Report 15745664 (Version 1)
Quarter: 2018Q4

REPORT INFORMATION
  Report Type: Report from Study
  Country: None (occurrence: BE)
  Receive Date: 20181220
  Receipt Date: 20181220
  Transmission Date: 20190205
  Serious: Yes (Other)
  Sender: FDA-Public Use
  Company Number: BE-ABBVIE-17K-013-2178967-00

PATIENT
  Sex: Male

DRUGS (20)
  1. GLUCOPHAGE [Concomitant]
     Active Substance: METFORMIN HYDROCHLORIDE
     Indication: PRODUCT USED FOR UNKNOWN INDICATION
  2. SIMVASTATINE [Concomitant]
     Active Substance: SIMVASTATIN
     Indication: PRODUCT USED FOR UNKNOWN INDICATION
  3. DUODOPA [Suspect]
     Active Substance: CARBIDOPA\LEVODOPA
     Dosage: MD=5.5ML??CD=3.6ML/HR DURING 16HRS ??ED=2ML
     Route: 050
     Dates: start: 20171122, end: 20180313
  4. DUODOPA [Suspect]
     Active Substance: CARBIDOPA\LEVODOPA
     Dosage: MD=5.5ML?CD=3.6 (AM)- 4.2 (PM) ML/HR DURING 16HRS ?ED=2ML
     Route: 050
     Dates: start: 20180313, end: 20180614
  5. DUODOPA [Suspect]
     Active Substance: CARBIDOPA\LEVODOPA
     Route: 050
     Dates: start: 2017, end: 20171122
  6. DUODOPA [Suspect]
     Active Substance: CARBIDOPA\LEVODOPA
     Indication: PARKINSON^S DISEASE
     Dosage: MD=9ML CD=4.3ML/HR DURING 16HRS  ED=1.5ML
     Route: 050
     Dates: start: 20160105, end: 20160108
  7. RIVOTRIL [Concomitant]
     Active Substance: CLONAZEPAM
     Indication: PRODUCT USED FOR UNKNOWN INDICATION
  8. DUODOPA [Suspect]
     Active Substance: CARBIDOPA\LEVODOPA
     Dosage: MD=5.5ML;??CD=3.7ML/HR (UNTIL 1PM)// 4.6 ML/HR (FROM 1 PM)  DURING 16H ; ??ED=2ML
     Route: 050
     Dates: start: 20170403, end: 2017
  9. DUODOPA [Suspect]
     Active Substance: CARBIDOPA\LEVODOPA
     Dosage: MD= 5.5ML CD= 3.7 (AM) AND 4.2 (PM) ML/HR DURING 16HRS ED= 1.5ML
     Route: 050
     Dates: start: 20181212
  10. SOTALOL 80 [Concomitant]
     Indication: PRODUCT USED FOR UNKNOWN INDICATION
  11. MIRAPEXIN [Concomitant]
     Active Substance: PRAMIPEXOLE
     Indication: PRODUCT USED FOR UNKNOWN INDICATION
  12. MIRAPEXIN [Concomitant]
     Active Substance: PRAMIPEXOLE
     Dosage: DOSAGE HAS BEEN CHANGED
  13. DUODOPA [Suspect]
     Active Substance: CARBIDOPA\LEVODOPA
     Dosage: DOSE CONTINUOUSLY MONITORED AND ADAPTED
     Route: 050
     Dates: start: 20160108, end: 20170403
  14. TAMSULOSINE [Concomitant]
     Active Substance: TAMSULOSIN HYDROCHLORIDE
     Indication: PRODUCT USED FOR UNKNOWN INDICATION
  15. CARDIOASPIRIN [Concomitant]
     Active Substance: ASPIRIN
     Indication: PRODUCT USED FOR UNKNOWN INDICATION
  16. CORUNO [Concomitant]
     Active Substance: MOLSIDOMINE
     Indication: PRODUCT USED FOR UNKNOWN INDICATION
  17. DUODOPA [Suspect]
     Active Substance: CARBIDOPA\LEVODOPA
     Dosage: MD=5.5ML CD=3.6 (AM) - 4.2 (PMM)ML/HR DURING 16HRS ED=1.5ML
     Route: 050
     Dates: start: 20180614, end: 20181212
  18. METARELAX [Concomitant]
     Indication: PRODUCT USED FOR UNKNOWN INDICATION
  19. ALDACTAZINE [Concomitant]
     Active Substance: ALTHIAZIDE\SPIRONOLACTONE
     Indication: PRODUCT USED FOR UNKNOWN INDICATION
     Dosage: FORM STRENGTH: 25MG/15MG
  20. MIRAPEXIN [Concomitant]
     Active Substance: PRAMIPEXOLE
     Indication: PARKINSON^S DISEASE
     Route: 048

REACTIONS (6)
  - On and off phenomenon [Unknown]
  - Dystonia [Not Recovered/Not Resolved]
  - Fibrous histiocytoma [Recovering/Resolving]
  - Freezing phenomenon [Unknown]
  - Gait disturbance [Unknown]
  - Dyskinesia [Unknown]
